FAERS Safety Report 8214954-9 (Version None)
Quarter: 2012Q1

REPORT INFORMATION
  Report Type: 
  Country: None (occurrence: None)
  Receive Date: 20120316
  Receipt Date: 20120309
  Transmission Date: 20120608
  Serious: Yes (Hospitalization)
  Sender: FDA-Public Use
  Company Number: DE-UCBSA-048631

PATIENT
  Sex: Female
  Weight: 95 kg

DRUGS (6)
  1. TRAMADOL HCL [Concomitant]
     Indication: HERPES ZOSTER
     Dates: start: 20111101, end: 20111110
  2. METHOTREXATE [Concomitant]
     Indication: RHEUMATOID ARTHRITIS
     Dates: start: 20090701
  3. ZOSTEX [Concomitant]
     Indication: HERPES ZOSTER
     Dates: start: 20111101, end: 20111107
  4. CERTOLIZUMAB PEGOL [Suspect]
     Indication: RHEUMATOID ARTHRITIS
     Route: 058
     Dates: start: 20110929, end: 20120224
  5. NOVALGIN [Concomitant]
     Indication: HERPES ZOSTER
     Dosage: SOLUTION/DROPS
     Dates: start: 20111101, end: 20111110
  6. LYRICA [Concomitant]
     Indication: HERPES ZOSTER
     Dates: start: 20111111, end: 20111201

REACTIONS (2)
  - PSORIASIS [None]
  - HERPES ZOSTER [None]
